FAERS Safety Report 6391318-4 (Version None)
Quarter: 2009Q4

REPORT INFORMATION
  Report Type: 
  Country: None (occurrence: None)
  Receive Date: 20091007
  Receipt Date: 20090930
  Transmission Date: 20100525
  Serious: Yes (Other)
  Sender: FDA-Public Use
  Company Number: PHHY2009JP41252

PATIENT
  Age: 73 Year
  Sex: Male

DRUGS (1)
  1. CIBACEN [Suspect]
     Route: 048

REACTIONS (1)
  - PETIT MAL EPILEPSY [None]
